FAERS Safety Report 23284726 (Version 2)
Quarter: 2023Q4

REPORT INFORMATION
  Report Type: Spontaneous
  Country: US (occurrence: US)
  Receive Date: 20231211
  Receipt Date: 20231215
  Transmission Date: 20240110
  Serious: Yes (Other)
  Sender: FDA-Public Use
  Company Number: US-Blueprint Medicines Corporation-SP-US-2023-002002

PATIENT
  Age: 69 Year
  Sex: Female

DRUGS (2)
  1. AYVAKIT [Suspect]
     Active Substance: AVAPRITINIB
     Indication: Vaginal cancer
     Route: 048
     Dates: start: 20230811, end: 20231128
  2. AYVAKIT [Suspect]
     Active Substance: AVAPRITINIB
     Dosage: LOWER DOSE
     Route: 065
     Dates: start: 20231205

REACTIONS (4)
  - Hallucination [Not Recovered/Not Resolved]
  - Gait disturbance [Not Recovered/Not Resolved]
  - Intentional dose omission [Unknown]
  - Off label use [Unknown]

NARRATIVE: CASE EVENT DATE: 20230811
